FAERS Safety Report 5811069-1 (Version None)
Quarter: 2008Q3

REPORT INFORMATION
  Report Type: 
  Country: None (occurrence: None)
  Receive Date: 20080716
  Receipt Date: 20080707
  Transmission Date: 20090109
  Serious: Yes (Other)
  Sender: FDA-Public Use
  Company Number: CA-JNJFOC-20080402547

PATIENT
  Sex: Male
  Weight: 66 kg

DRUGS (7)
  1. REMICADE [Suspect]
     Dosage: LOADING DOSE, 3 TOTAL INFUSIONS  RATE OF INFUSION AT ONSET OF ADVERSE EVENT WAS 50 CC/HR.
     Route: 042
  2. REMICADE [Suspect]
     Dosage: LOADING DOSE
     Route: 042
  3. REMICADE [Suspect]
     Indication: COLITIS
     Dosage: LOADING DOSE
     Route: 042
  4. TYLENOL [Concomitant]
     Indication: PREMEDICATION
     Dosage: AT 08:45 AM
     Route: 048
  5. BENADRYL [Concomitant]
     Indication: PREMEDICATION
     Dosage: AT 09:40
     Route: 042
  6. SOLU-CORTEF [Concomitant]
     Indication: PREMEDICATION
  7. GRAVOL TAB [Concomitant]
     Indication: PREMEDICATION

REACTIONS (10)
  - ABDOMINAL PAIN UPPER [None]
  - DIARRHOEA [None]
  - DIZZINESS [None]
  - DYSPNOEA [None]
  - FEELING HOT [None]
  - FLUSHING [None]
  - HYPERHIDROSIS [None]
  - INFUSION RELATED REACTION [None]
  - NAUSEA [None]
  - URTICARIA [None]
